FAERS Safety Report 8492107-7 (Version None)
Quarter: 2012Q3

REPORT INFORMATION
  Report Type: 
  Country: None (occurrence: None)
  Receive Date: 20120706
  Receipt Date: 20120703
  Transmission Date: 20120928
  Serious: Yes (Death)
  Sender: FDA-Public Use
  Company Number: US-PFIZER INC-2012138334

PATIENT
  Sex: Male

DRUGS (1)
  1. RAPAMUNE [Suspect]
     Indication: IMMUNOSUPPRESSION
     Dosage: 0.5 MG, M/W/F
     Route: 048

REACTIONS (5)
  - SYSTEMIC CANDIDA [None]
  - MULTI-ORGAN FAILURE [None]
  - HEPATIC CANCER METASTATIC [None]
  - NEOPLASM MALIGNANT [None]
  - LUNG CANCER METASTATIC [None]
